FAERS Safety Report 15693075 (Version 1)
Quarter: 2018Q4

REPORT INFORMATION
  Report Type: Spontaneous
  Country: US (occurrence: US)
  Receive Date: 20181206
  Receipt Date: 20181206
  Transmission Date: 20190205
  Serious: Yes (Other)
  Sender: FDA-Public Use
  Company Number: US-BIO PRODUCTS LABORATORY LTD-2059742

PATIENT
  Age: 55 Year
  Sex: Female

DRUGS (2)
  1. BENADRYL [Concomitant]
     Active Substance: DIPHENHYDRAMINE HYDROCHLORIDE
  2. GAMMAPLEX [Suspect]
     Active Substance: HUMAN IMMUNOGLOBULIN G
     Indication: MYASTHENIA GRAVIS

REACTIONS (5)
  - Pruritus [Recovered/Resolved]
  - Eye swelling [Recovered/Resolved]
  - Erythema [Recovered/Resolved]
  - Rash [Recovered/Resolved]
  - Product use in unapproved indication [Recovered/Resolved]
